FAERS Safety Report 4360799-X (Version None)
Quarter: 2004Q2

REPORT INFORMATION
  Report Type: 
  Country: None (occurrence: None)
  Receive Date: 20040517
  Receipt Date: 20040503
  Transmission Date: 20050107
  Serious: Yes (Hospitalization)
  Sender: FDA-Public Use
  Company Number: 2004212999DE

PATIENT
  Age: 35 Year
  Sex: Female
  Weight: 59 kg

DRUGS (2)
  1. EPIRUBICIN [Suspect]
     Indication: BREAST CANCER
     Dosage: 90 MG/M2, CYCLIC (CYCLE 4), IV
     Route: 042
     Dates: start: 20040309
  2. CYCLOPHOSPHAMIDE [Suspect]
     Indication: BREAST CANCER
     Dosage: 600 MG/M2, CYCLIC (CYCLE 4), IV
     Route: 042
     Dates: start: 20040309

REACTIONS (3)
  - ABDOMINAL PAIN LOWER [None]
  - C-REACTIVE PROTEIN INCREASED [None]
  - DIARRHOEA [None]
